FAERS Safety Report 14957255 (Version 1)
Quarter: 2018Q2

REPORT INFORMATION
  Report Type: Spontaneous
  Country: US (occurrence: US)
  Receive Date: 20180509
  Receipt Date: 20180509
  Transmission Date: 20180711
  Serious: Yes (Other)
  Sender: FDA-Public Use
  Company Number: None

PATIENT
  Age: 54 Year
  Sex: Male
  Weight: 99.11 kg

DRUGS (1)
  1. CELEBREX, CELECOXIB [Suspect]
     Active Substance: CELECOXIB
     Indication: BACK PAIN
     Route: 048
     Dates: start: 20170802, end: 20180427

REACTIONS (3)
  - Product substitution issue [None]
  - Drug ineffective [None]
  - Therapeutic response changed [None]
